FAERS Safety Report 4927509-6 (Version None)
Quarter: 2006Q1

REPORT INFORMATION
  Report Type: 
  Country: None (occurrence: None)
  Receive Date: 20060228
  Receipt Date: 20050829
  Transmission Date: 20060701
  Serious: Yes (Hospitalization)
  Sender: FDA-Public Use
  Company Number: US-MERCK-0508USA04877

PATIENT
  Age: 62 Year
  Sex: Male
  Weight: 110 kg

DRUGS (3)
  1. VIOXX [Suspect]
     Indication: ARTHRALGIA
     Route: 048
     Dates: end: 20040901
  2. TENORMIN [Concomitant]
     Route: 065
  3. DYAZIDE [Concomitant]
     Route: 065

REACTIONS (2)
  - AORTIC ANEURYSM [None]
  - HYPERTENSION [None]
